FAERS Safety Report 6287315-X (Version None)
Quarter: 2009Q3

REPORT INFORMATION
  Report Type: 
  Country: None (occurrence: None)
  Receive Date: 20090728
  Receipt Date: 20090717
  Transmission Date: 20100115
  Serious: Yes (Other)
  Sender: FDA-Public Use
  Company Number: US-PFIZER INC-2009232805

PATIENT
  Sex: Female
  Weight: 54.4 kg

DRUGS (2)
  1. LIPITOR [Suspect]
     Indication: BLOOD CHOLESTEROL INCREASED
     Dosage: UNK
  2. THYROID [Concomitant]
     Dosage: UNK

REACTIONS (4)
  - BLOOD AMYLASE INCREASED [None]
  - MYALGIA [None]
  - RENAL ATROPHY [None]
  - RENAL TUBULAR DISORDER [None]
